FAERS Safety Report 15035798 (Version 1)
Quarter: 2018Q2

REPORT INFORMATION
  Report Type: Spontaneous
  Country: FR (occurrence: FR)
  Receive Date: 20180620
  Receipt Date: 20180620
  Transmission Date: 20180711
  Serious: Yes (Life-Threatening)
  Sender: FDA-Public Use
  Company Number: FR-PFIZER INC-2018244511

PATIENT
  Age: 66 Year
  Sex: Male
  Weight: 90 kg

DRUGS (8)
  1. CAMPTO [Suspect]
     Active Substance: IRINOTECAN
     Dosage: UNK
     Route: 041
     Dates: start: 20180319, end: 20180320
  2. ZOPHREN /00955302/ [Concomitant]
     Active Substance: ONDANSETRON
     Dosage: UNK
     Route: 042
  3. POLARAMINE [Concomitant]
     Active Substance: DEXCHLORPHENIRAMINE MALEATE
     Dosage: UNK
     Route: 042
  4. AZANTAC [Concomitant]
     Active Substance: RANITIDINE HYDROCHLORIDE
     Dosage: UNK
     Route: 042
  5. LEVOFOLINATE CALCIUM [Concomitant]
     Active Substance: LEVOLEUCOVORIN CALCIUM
     Dosage: UNK
     Route: 041
  6. FLUOROURACIL. [Suspect]
     Active Substance: FLUOROURACIL
     Dosage: UNK
     Route: 041
     Dates: start: 20180319, end: 20180320
  7. SOLU-MEDROL [Concomitant]
     Active Substance: METHYLPREDNISOLONE SODIUM SUCCINATE
     Dosage: UNK
     Route: 042
  8. ATROPINE. [Concomitant]
     Active Substance: ATROPINE
     Dosage: UNK
     Route: 058

REACTIONS (5)
  - Mucosal inflammation [Unknown]
  - Septic shock [Unknown]
  - Hypotension [Unknown]
  - Febrile bone marrow aplasia [Unknown]
  - Diarrhoea [Unknown]

NARRATIVE: CASE EVENT DATE: 20180320
